FAERS Safety Report 5700854-2 (Version None)
Quarter: 2008Q2

REPORT INFORMATION
  Report Type: 
  Country: None (occurrence: None)
  Receive Date: 20080410
  Receipt Date: 20080331
  Transmission Date: 20081010
  Serious: Yes (Other)
  Sender: FDA-Public Use
  Company Number: US-PURDUE-USA_2008_0032243

PATIENT
  Age: 29 Year
  Sex: Female

DRUGS (4)
  1. OXYCONTIN [Suspect]
     Indication: DRUG ABUSE
  2. LORTAB [Suspect]
     Indication: PAIN
     Dosage: UNK, UNK
  3. VALIUM [Suspect]
     Indication: DRUG USE FOR UNKNOWN INDICATION
     Dosage: 2 TABLET, UNK
  4. XANAX [Suspect]
     Indication: DRUG USE FOR UNKNOWN INDICATION
     Dosage: 2 TABLET, UNK

REACTIONS (10)
  - DRUG ABUSE [None]
  - DRUG DEPENDENCE [None]
  - FEELING ABNORMAL [None]
  - GASTRIC LAVAGE [None]
  - KIDNEY INFECTION [None]
  - LOSS OF CONSCIOUSNESS [None]
  - MEMORY IMPAIRMENT [None]
  - MULTIPLE DRUG OVERDOSE [None]
  - URINARY TRACT INFECTION [None]
  - VOMITING [None]
